FAERS Safety Report 25420509 (Version 1)
Quarter: 2025Q2

REPORT INFORMATION
  Report Type: Report from Study
  Country: CA (occurrence: CA)
  Receive Date: 20250611
  Receipt Date: 20250611
  Transmission Date: 20250716
  Serious: Yes (Other)
  Sender: ABBVIE
  Company Number: CA-ABBVIE-6314601

PATIENT
  Age: 45 Year
  Sex: Female

DRUGS (1)
  1. HUMIRA [Suspect]
     Active Substance: ADALIMUMAB
     Indication: Crohn^s disease
     Route: 058

REACTIONS (13)
  - Gastrointestinal obstruction [Recovering/Resolving]
  - COVID-19 [Unknown]
  - Dyspepsia [Unknown]
  - Pain [Unknown]
  - Scar [Recovered/Resolved]
  - Stenosis [Recovered/Resolved]
  - Abdominal tenderness [Unknown]
  - Abdominal distension [Unknown]
  - Abdominal discomfort [Unknown]
  - Gastrointestinal disorder [Unknown]
  - Chest discomfort [Unknown]
  - Flatulence [Unknown]
  - Eructation [Unknown]

NARRATIVE: CASE EVENT DATE: 20250201
